FAERS Safety Report 11502814 (Version 2)
Quarter: 2016Q3

REPORT INFORMATION
  Report Type: Spontaneous
  Country: US (occurrence: US)
  Receive Date: 20150914
  Receipt Date: 20160915
  Transmission Date: 20161109
  Serious: Yes (Hospitalization)
  Sender: FDA-Public Use
  Company Number: US-ASTELLAS-2015US029146

PATIENT
  Age: 84 Year
  Sex: Male

DRUGS (2)
  1. XTANDI [Suspect]
     Active Substance: ENZALUTAMIDE
     Indication: PROSTATE CANCER METASTATIC
     Dosage: 160 MG (4X40 MG), ONCE DAILY
     Route: 065
     Dates: start: 20150724
  2. XTANDI [Suspect]
     Active Substance: ENZALUTAMIDE
     Indication: PROSTATIC SPECIFIC ANTIGEN INCREASED
     Dosage: 160 MG (4X40 MG), ONCE DAILY
     Route: 065
     Dates: start: 20150902

REACTIONS (9)
  - Asthenia [Unknown]
  - Oropharyngeal pain [Recovered/Resolved]
  - Hypophagia [Unknown]
  - Fatigue [Recovering/Resolving]
  - Fluid intake reduced [Unknown]
  - Cough [Recovered/Resolved]
  - Urinary tract infection [Unknown]
  - Hypersomnia [Recovering/Resolving]
  - Feeling abnormal [Unknown]

NARRATIVE: CASE EVENT DATE: 201507
